FAERS Safety Report 25378087 (Version 2)
Quarter: 2025Q3

REPORT INFORMATION
  Report Type: Spontaneous
  Country: US (occurrence: US)
  Receive Date: 20250530
  Receipt Date: 20250810
  Transmission Date: 20251021
  Serious: No
  Sender: ALEXION PHARMACEUTICALS
  Company Number: US-ASTRAZENECA-202505USA025089US

PATIENT
  Sex: Female

DRUGS (2)
  1. CAPIVASERTIB [Suspect]
     Active Substance: CAPIVASERTIB
     Route: 065
  2. INAVOLISIB [Concomitant]
     Active Substance: INAVOLISIB
     Route: 065

REACTIONS (2)
  - Drug intolerance [Unknown]
  - Rash [Unknown]
